FAERS Safety Report 5893831-2 (Version None)
Quarter: 2008Q3

REPORT INFORMATION
  Report Type: 
  Country: None (occurrence: None)
  Receive Date: 20080923
  Receipt Date: 20071030
  Transmission Date: 20090109
  Serious: No
  Sender: FDA-Public Use
  Company Number: US-ASTRAZENECA-2007UW25169

PATIENT
  Age: 42 Year
  Sex: Male
  Weight: 102.1 kg

DRUGS (4)
  1. SEROQUEL [Suspect]
     Indication: BIPOLAR DISORDER
     Route: 048
  2. PREVICID [Concomitant]
  3. ZOCOR [Concomitant]
  4. TRICOR [Concomitant]

REACTIONS (2)
  - SOCIAL AVOIDANT BEHAVIOUR [None]
  - TREMOR [None]
